FAERS Safety Report 12908456 (Version 1)
Quarter: 2016Q4

REPORT INFORMATION
  Report Type: Spontaneous
  Country: US (occurrence: US)
  Receive Date: 20161103
  Receipt Date: 20161103
  Transmission Date: 20170207
  Serious: Yes (Hospitalization)
  Sender: FDA-Public Use
  Company Number: US-INCYTE CORPORATION-2016IN005935

PATIENT
  Age: 49 Year
  Sex: Female

DRUGS (1)
  1. JAKAFI [Suspect]
     Active Substance: RUXOLITINIB
     Indication: POLYCYTHAEMIA VERA
     Dosage: 10 MG, BID
     Route: 048
     Dates: start: 20160827

REACTIONS (4)
  - Heart rate increased [Unknown]
  - Dizziness [Unknown]
  - Blood pressure decreased [Unknown]
  - Wrist fracture [Unknown]

NARRATIVE: CASE EVENT DATE: 201609
